FAERS Safety Report 17540383 (Version 2)
Quarter: 2020Q2

REPORT INFORMATION
  Report Type: Spontaneous
  Country: ES (occurrence: ES)
  Receive Date: 20200313
  Receipt Date: 20200408
  Transmission Date: 20200713
  Serious: Yes (Hospitalization)
  Sender: FDA-Public Use
  Company Number: ES-BAUSCH-BL-2020-006943

PATIENT
  Age: 74 Year
  Sex: Male

DRUGS (14)
  1. EUTIROX [Concomitant]
     Active Substance: LEVOTHYROXINE SODIUM
     Indication: HYPOTHYROIDISM
     Dosage: 100 COMPRESSED TABLETS
     Route: 048
     Dates: start: 20181005
  2. PALEXIA [Concomitant]
     Active Substance: TAPENTADOL HYDROCHLORIDE
     Indication: HYPERTENSIVE HEART DISEASE
     Dosage: 60 TABLETS
     Route: 048
     Dates: start: 20151109
  3. DUTASTERIDE;TAMSULOSIN [Concomitant]
     Indication: BENIGN PROSTATIC HYPERPLASIA
     Dosage: 0.5 MG/ 0.4 MG; 30 CAPSULES
     Route: 048
     Dates: start: 20130604
  4. TOUJEO [Concomitant]
     Active Substance: INSULIN GLARGINE
     Indication: TYPE 2 DIABETES MELLITUS
     Dosage: 300 UNITS / ML, 3 PENS 1.5 ML
     Route: 058
     Dates: start: 20171214
  5. ZANIDIP [Concomitant]
     Active Substance: LERCANIDIPINE HYDROCHLORIDE
     Indication: ESSENTIAL HYPERTENSION
     Dosage: 28 TABLETS
     Route: 048
     Dates: start: 20131211
  6. EPLERENONA [Concomitant]
     Active Substance: EPLERENONE
     Indication: HYPERTENSIVE HEART DISEASE
     Dosage: 30 TABLETS
     Route: 048
     Dates: start: 20160106
  7. DICLOFENACO [Suspect]
     Active Substance: DICLOFENAC
     Indication: SPONDYLITIS
     Route: 048
     Dates: start: 20190528, end: 20190530
  8. PREDNISONA [Suspect]
     Active Substance: PREDNISONE
     Indication: SPONDYLITIS
     Route: 048
     Dates: start: 20190521, end: 20190530
  9. ALOPURINOL [Concomitant]
     Active Substance: ALLOPURINOL
     Indication: GOUT
     Dates: start: 20130321
  10. JARDIANCE [Concomitant]
     Active Substance: EMPAGLIFLOZIN
     Indication: TYPE 2 DIABETES MELLITUS
     Dosage: 30 TABLETS
     Route: 048
     Dates: start: 20171214
  11. FLUOXETINA [Concomitant]
     Active Substance: FLUOXETINE HYDROCHLORIDE
     Indication: ANXIETY
     Dosage: 60 CAPSULES
     Route: 048
     Dates: start: 20160305
  12. ESOMEPRAZOL [Concomitant]
     Active Substance: ESOMEPRAZOLE
     Indication: DYSPEPSIA
     Dosage: 28 CAPSULES
     Route: 048
     Dates: start: 20131211
  13. GABAPENTINA [Concomitant]
     Active Substance: GABAPENTIN
     Indication: DIABETIC NEUROPATHY
     Dosage: 90 CAPSULES
     Route: 048
     Dates: start: 20140910
  14. LINAGLIPTIN;METFORMIN [Concomitant]
     Active Substance: LINAGLIPTIN\METFORMIN HYDROCHLORIDE
     Indication: TYPE 2 DIABETES MELLITUS
     Dosage: (2.5/1000) MG COMP EVERY/12 H
     Route: 048
     Dates: start: 20140508

REACTIONS (3)
  - Diabetic metabolic decompensation [Recovered/Resolved]
  - Confusional state [Recovered/Resolved]
  - Pyrexia [Recovered/Resolved]

NARRATIVE: CASE EVENT DATE: 20190530
